FAERS Safety Report 17406471 (Version 1)
Quarter: 2020Q1

REPORT INFORMATION
  Report Type: Spontaneous
  Country: US (occurrence: US)
  Receive Date: 20200211
  Receipt Date: 20200211
  Transmission Date: 20200409
  Serious: Yes (Other)
  Sender: FDA-Public Use
  Company Number: None

PATIENT
  Age: 61 Year
  Sex: Female
  Weight: 89.37 kg

DRUGS (7)
  1. PIQRAY [Suspect]
     Active Substance: ALPELISIB
     Indication: BREAST CANCER FEMALE
     Route: 048
     Dates: start: 20191206, end: 20191217
  2. FASLODEX [Concomitant]
     Active Substance: FULVESTRANT
     Dates: start: 20181211
  3. PERCOCET [Concomitant]
     Active Substance: ACETAMINOPHEN\OXYCODONE HYDROCHLORIDE
     Dates: start: 20181211
  4. BIOTIN [Concomitant]
     Active Substance: BIOTIN
     Dates: start: 20181212
  5. ALLEGRA-D [Concomitant]
     Active Substance: FEXOFENADINE\PSEUDOEPHEDRINE
     Dates: start: 20181211
  6. FIORICET [Concomitant]
     Active Substance: ACETAMINOPHEN\BUTALBITAL\CAFFEINE
     Dates: start: 20181209
  7. LORAZEPAM. [Concomitant]
     Active Substance: LORAZEPAM
     Dates: start: 20181211

REACTIONS (3)
  - Rash [None]
  - Urticaria [None]
  - Stevens-Johnson syndrome [None]

NARRATIVE: CASE EVENT DATE: 20191217
